FAERS Safety Report 7703442-1 (Version None)
Quarter: 2011Q3

REPORT INFORMATION
  Report Type: 
  Country: None (occurrence: None)
  Receive Date: 20110823
  Receipt Date: 20110823
  Transmission Date: 20111222
  Serious: No
  Sender: FDA-Public Use
  Company Number: None

PATIENT
  Age: 48 Year
  Sex: Female
  Weight: 98.883 kg

DRUGS (1)
  1. NITROFURANTOIN [Suspect]
     Indication: URINARY TRACT INFECTION
     Dosage: 1 PILL
     Dates: start: 20110820, end: 20110822

REACTIONS (6)
  - CHILLS [None]
  - ASTHENIA [None]
  - PYREXIA [None]
  - HEADACHE [None]
  - MALAISE [None]
  - BONE PAIN [None]
